FAERS Safety Report 4733384-5 (Version None)
Quarter: 2005Q3

REPORT INFORMATION
  Report Type: 
  Country: None (occurrence: None)
  Receive Date: 20050801
  Receipt Date: 20050801
  Transmission Date: 20060218
  Serious: Yes (Hospitalization)
  Sender: FDA-Public Use
  Company Number: None

PATIENT
  Age: 76 Year
  Sex: Male

DRUGS (14)
  1. WARFARIN [Suspect]
     Indication: DEEP VEIN THROMBOSIS
     Dosage: 1 MG QD EXCEPT MON AND FRI
     Dates: start: 20040108
  2. MORPHINE [Concomitant]
  3. PROCHLORPERAZINE [Concomitant]
  4. CALCITONIN [Concomitant]
  5. DSS [Concomitant]
  6. SALSALATE [Concomitant]
  7. FOSINOPRIL SODIUM [Concomitant]
  8. ISOSORBIDE [Concomitant]
  9. METOPROLOL [Concomitant]
  10. ZOCOR [Concomitant]
  11. TRAZODONE [Concomitant]
  12. MEGESTROL [Concomitant]
  13. B12 [Concomitant]
  14. NITROGLYCERIN [Concomitant]

REACTIONS (1)
  - GASTROINTESTINAL HAEMORRHAGE [None]
